FAERS Safety Report 5889470-X (Version None)
Quarter: 2008Q3

REPORT INFORMATION
  Report Type: 
  Country: None (occurrence: None)
  Receive Date: 20080919
  Receipt Date: 20080905
  Transmission Date: 20090109
  Serious: Yes (Other)
  Sender: FDA-Public Use
  Company Number: DK-GENENTECH-263344

PATIENT
  Sex: Female

DRUGS (4)
  1. RANIBIZUMAB [Suspect]
     Indication: MACULAR DEGENERATION
     Dates: start: 20070917
  2. RANIBIZUMAB [Suspect]
     Indication: CHOROIDAL NEOVASCULARISATION
  3. VERTEPORFIN VS. PLACEBO [Suspect]
     Indication: MACULAR DEGENERATION
     Dates: start: 20070917
  4. VERTEPORFIN VS. PLACEBO [Suspect]
     Indication: CHOROIDAL NEOVASCULARISATION

REACTIONS (2)
  - RETINAL OEDEMA [None]
  - VISUAL IMPAIRMENT [None]
